FAERS Safety Report 6825323-8 (Version None)
Quarter: 2010Q3

REPORT INFORMATION
  Report Type: 
  Country: None (occurrence: None)
  Receive Date: 20100708
  Receipt Date: 20061228
  Transmission Date: 20110219
  Serious: No
  Sender: FDA-Public Use
  Company Number: US-PFIZER INC-2006147422

PATIENT
  Sex: Male
  Weight: 90.72 kg

DRUGS (13)
  1. CHANTIX [Suspect]
     Dates: start: 20061027, end: 20061101
  2. LIPITOR [Concomitant]
  3. ALL OTHER THERAPEUTIC PRODUCTS [Concomitant]
  4. PROZAC [Concomitant]
  5. TOPROL-XL [Concomitant]
  6. PRILOSEC [Concomitant]
  7. MUCINEX [Concomitant]
  8. WARFARIN SODIUM [Concomitant]
  9. ALBUTEROL SULFATE [Concomitant]
  10. PULMICORT [Concomitant]
  11. ADVAIR DISKUS 100/50 [Concomitant]
  12. SPIRIVA [Concomitant]
  13. XOPENEX [Concomitant]

REACTIONS (5)
  - CHRONIC OBSTRUCTIVE PULMONARY DISEASE [None]
  - MALAISE [None]
  - MYALGIA [None]
  - NAUSEA [None]
  - VOMITING [None]
